FAERS Safety Report 16414623 (Version 1)
Quarter: 2019Q2

REPORT INFORMATION
  Report Type: Spontaneous
  Country: US (occurrence: US)
  Receive Date: 20190610
  Receipt Date: 20190610
  Transmission Date: 20190711
  Serious: No
  Sender: FDA-Public Use
  Company Number: None

PATIENT
  Age: 6 Year
  Sex: Male
  Weight: 89.7 kg

DRUGS (4)
  1. TENEX [Concomitant]
     Active Substance: GUANFACINE HYDROCHLORIDE
     Dates: start: 20140926
  2. LUVOX [Concomitant]
     Active Substance: FLUVOXAMINE MALEATE
     Dates: start: 20171226
  3. LATUDA [Suspect]
     Active Substance: LURASIDONE HYDROCHLORIDE
     Indication: PARANOIA
     Route: 048
     Dates: start: 20180816, end: 20190610
  4. CONCERTA [Concomitant]
     Active Substance: METHYLPHENIDATE HYDROCHLORIDE
     Dates: start: 20110322

REACTIONS (1)
  - Oculogyric crisis [None]

NARRATIVE: CASE EVENT DATE: 20090609
